FAERS Safety Report 8475248 (Version 2)
Quarter: 2013Q1

REPORT INFORMATION
  Report Type: Spontaneous
  Country: CZ (occurrence: CZ)
  Receive Date: 20120326
  Receipt Date: 20130103
  Transmission Date: 20140127
  Serious: Yes (Death, Life-Threatening, Hospitalization)
  Sender: FDA-Public Use
  Company Number: CZ-AMGEN-CZESP2012017712

PATIENT
  Age: 56 Year
  Sex: Female

DRUGS (22)
  1. PEGFILGRASTIM [Suspect]
     Indication: PRODUCT USED FOR UNKNOWN INDICATION
     Dosage: 6 MG, UNK
     Route: 058
     Dates: start: 20111110
  2. RITUXIMAB [Suspect]
     Indication: DIFFUSE LARGE B-CELL LYMPHOMA
     Dosage: 580 MG, QD
     Route: 042
     Dates: start: 20111109
  3. RITUXIMAB [Suspect]
     Dosage: 580 MG, QD
     Dates: start: 20111129, end: 20111129
  4. CYCLOPHOSPHAMIDE [Suspect]
     Indication: DIFFUSE LARGE B-CELL LYMPHOMA
     Dosage: 3100 MG, UNK
     Route: 042
     Dates: start: 20111110
  5. CYCLOPHOSPHAMIDE [Suspect]
     Dosage: 4650 MG, QD
     Dates: start: 20111129, end: 20111129
  6. DOXORUBICIN [Suspect]
     Indication: DIFFUSE LARGE B-CELL LYMPHOMA
     Dosage: 116 MG, UNK
     Route: 042
     Dates: start: 20111110
  7. DOXORUBICIN [Suspect]
     Dosage: 116 MG, QD
     Dates: start: 20111129, end: 20111129
  8. VINCRISTIN [Suspect]
     Indication: DIFFUSE LARGE B-CELL LYMPHOMA
     Dosage: 2 MG, UNK
     Route: 042
     Dates: start: 20111110
  9. VINCRISTIN [Suspect]
     Dosage: 2 MG, QD
     Dates: start: 20111129, end: 20111129
  10. PREDNISONE [Suspect]
     Indication: DIFFUSE LARGE B-CELL LYMPHOMA
     Dosage: 90 MG, UNK
     Route: 048
     Dates: start: 20111110
  11. PREDNISONE [Suspect]
     Dosage: 90 MG, QD
     Route: 048
     Dates: start: 20111129, end: 20111129
  12. NEUPOGEN [Concomitant]
     Indication: PRODUCT USED FOR UNKNOWN INDICATION
     Dosage: 600 MUG, UNK
     Route: 058
     Dates: start: 20111201, end: 20111222
  13. URSOSAN [Concomitant]
     Dosage: 2 DF, Q8H
     Route: 048
     Dates: start: 20111221, end: 20111222
  14. URSOSAN [Concomitant]
     Dosage: 250 MG, BID
     Dates: start: 20020615
  15. TRANSMETIL                         /00882301/ [Concomitant]
     Dosage: 500 MG, BID
     Route: 042
     Dates: start: 20111206, end: 20111218
  16. TRANSMETIL                         /00882301/ [Concomitant]
     Dosage: 500 MG, Q8H
     Route: 042
     Dates: start: 20111221, end: 20111222
  17. MUCOSOLVAN [Concomitant]
     Dosage: 1 ML, TID
     Dates: start: 20111216, end: 20111222
  18. HELICID                            /00661201/ [Concomitant]
     Dosage: 40 MG, UNK
     Route: 042
     Dates: start: 20111020, end: 20111211
  19. BERODUAL [Concomitant]
     Dosage: 0.5 ML, TID
     Dates: start: 20111216, end: 20111222
  20. BATRAFEN                           /00619302/ [Concomitant]
     Dosage: 1 DF, BID
     Route: 061
     Dates: start: 20111209, end: 20111217
  21. OXICONAZOLE NITRATE [Concomitant]
     Dosage: 1 DF, BID
     Route: 061
     Dates: start: 20111209, end: 20111217
  22. OMEPRAZOL                          /00661201/ [Concomitant]
     Dosage: 20 MG, BID
     Dates: start: 20111013

REACTIONS (6)
  - Multi-organ failure [Fatal]
  - Septic shock [Not Recovered/Not Resolved]
  - Acute respiratory failure [Not Recovered/Not Resolved]
  - Stomatitis [Recovered/Resolved]
  - Mucosal inflammation [Not Recovered/Not Resolved]
  - Febrile neutropenia [Not Recovered/Not Resolved]
